FAERS Safety Report 5359454-9 (Version None)
Quarter: 2007Q2

REPORT INFORMATION
  Report Type: 
  Country: None (occurrence: None)
  Receive Date: 20070615
  Receipt Date: 20070601
  Transmission Date: 20071010
  Serious: Yes (Other)
  Sender: FDA-Public Use
  Company Number: US-PFIZER INC-2007045373

PATIENT
  Sex: Female

DRUGS (2)
  1. METHYLPREDNISOLONE 16MG TAB [Suspect]
     Indication: MULTIPLE SCLEROSIS
     Dosage: DAILY DOSE:1000MG
     Route: 042
  2. REBIF [Suspect]
     Indication: MULTIPLE SCLEROSIS
     Dosage: DAILY DOSE:44MCG-FREQ:INTERVAL: 3 IN 1 WEEKS
     Route: 058

REACTIONS (7)
  - FLIGHT OF IDEAS [None]
  - HALLUCINATION, VISUAL [None]
  - INJECTION SITE MASS [None]
  - INSOMNIA [None]
  - MANIA [None]
  - MULTIPLE SCLEROSIS RELAPSE [None]
  - PSYCHOTIC DISORDER [None]
